FAERS Safety Report 5606772-2 (Version None)
Quarter: 2008Q1

REPORT INFORMATION
  Report Type: 
  Country: None (occurrence: None)
  Receive Date: 20080129
  Receipt Date: 20080121
  Transmission Date: 20080703
  Serious: Yes (Death, Hospitalization)
  Sender: FDA-Public Use
  Company Number: DE-PFIZER INC-2000028763DE

PATIENT
  Sex: Male

DRUGS (10)
  1. CABASERIL [Suspect]
     Indication: PARKINSON'S DISEASE
     Route: 048
     Dates: start: 19970101, end: 20000712
  2. PK-MERZ [Concomitant]
  3. MADOPAR [Concomitant]
     Dosage: TEXT:375MG-FREQ:DAILY
  4. SPIRONOLACTONE [Concomitant]
  5. FUROSEMIDE [Concomitant]
     Dosage: TEXT:40MG-FREQ:DAILY
  6. VIOXX [Concomitant]
     Dosage: TEXT:25-FREQ:DAILY
     Dates: start: 20000501
  7. OMEPRAZOLE [Concomitant]
     Dosage: TEXT:20MG-FREQ:DAILY
  8. LACTULOSE [Concomitant]
     Dosage: TEXT:20ML-FREQ:DAILY
  9. PRAMIPEXOLE DIHYDROCHLORIDE [Concomitant]
  10. LISINOPRIL [Concomitant]

REACTIONS (2)
  - NON-HODGKIN'S LYMPHOMA [None]
  - PLEUROPERICARDITIS [None]
